FAERS Safety Report 24087904 (Version 13)
Quarter: 2024Q4

REPORT INFORMATION
  Report Type: Report from Study
  Country: AU (occurrence: AU)
  Receive Date: 20240715
  Receipt Date: 20241113
  Transmission Date: 20250115
  Serious: Yes (Hospitalization, Other)
  Sender: JOHNSON AND JOHNSON
  Company Number: AU-JNJFOC-20240601549

PATIENT
  Age: 8 Decade
  Sex: Female
  Weight: 77 kg

DRUGS (38)
  1. MACITENTAN [Suspect]
     Active Substance: MACITENTAN
     Indication: Pulmonary arterial hypertension
     Route: 048
  2. SELEXIPAG [Suspect]
     Active Substance: SELEXIPAG
     Indication: Pulmonary arterial hypertension
     Dosage: END DATE: JUL-2024
     Route: 048
  3. VELETRI [Suspect]
     Active Substance: EPOPROSTENOL
     Indication: Pulmonary arterial hypertension
     Dosage: 1.5MG, 1 VIAL/24HRS
     Route: 042
  4. VELETRI [Suspect]
     Active Substance: EPOPROSTENOL
     Dosage: 2 X 1.5MG (=3MG) 3MG IN 100ML INFUSED AT 2.5ML/HR EQUIVALENT TO 16.5NG/KG/MIN?THERAPY START DATE:/JU
     Route: 042
  5. VELETRI [Suspect]
     Active Substance: EPOPROSTENOL
     Dosage: 3MG IN 100ML, INFUSED AT 2.5ML PER HOUR, EQUIVALENT TO 16NG/KG/MIN
     Route: 042
  6. VELETRI [Suspect]
     Active Substance: EPOPROSTENOL
     Dosage: 4.5MG IN 100ML,1.7ML/HR EQUIVALENT TO 16NG/KG/MIN, THERAPY STARTDATE /JUL/2024
     Route: 042
  7. VELETRI [Suspect]
     Active Substance: EPOPROSTENOL
     Dosage: 4.5MG IN 100ML,1.7ML/HR EQUIVALENT TO 17NG/KG/MIN, THERAPY START DATE /JUL/2024
     Route: 042
  8. TADALAFIL [Suspect]
     Active Substance: TADALAFIL
     Indication: Pulmonary arterial hypertension
     Route: 048
  9. GLICLAZIDE [Concomitant]
     Active Substance: GLICLAZIDE
     Indication: Diabetes mellitus
     Route: 048
  10. DOXYCYCLINE [Concomitant]
     Active Substance: DOXYCYCLINE
     Dosage: INDICATION: ANTIBIOTIC
     Route: 048
  11. DOXYCYCLINE [Concomitant]
     Active Substance: DOXYCYCLINE
     Route: 048
  12. PANTOPRAZOLE [Concomitant]
     Active Substance: PANTOPRAZOLE
     Indication: Gastrooesophageal reflux disease
     Dosage: INDICATION: TO TREAT REFLUX DISEASE
     Route: 048
  13. PREGABALIN [Concomitant]
     Active Substance: PREGABALIN
     Indication: Neuralgia
     Route: 048
  14. FUROSEMIDE [Concomitant]
     Active Substance: FUROSEMIDE
     Dosage: 3 TABLETS (2120MG) MANE; 1-2 TABLETS LUNCH PO?INDICATION: TO TREAT EXCESS FLUID?80MG MANE
     Route: 048
  15. SPIRONOLACTONE [Concomitant]
     Active Substance: SPIRONOLACTONE
     Dosage: 25MG TABLET, 2 MANE PO?INDICATION: TO REMOVE EXCESS FLUID
     Route: 048
  16. ROSUVASTATIN [Concomitant]
     Active Substance: ROSUVASTATIN
     Dosage: INDICATION: TO REDUCE CHOLESTEROL
     Route: 048
  17. TRELEGY ELLIPTA [Concomitant]
     Active Substance: FLUTICASONE FUROATE\UMECLIDINIUM BROMIDE\VILANTEROL TRIFENATATE
     Dosage: 1 PUFF MANE
  18. JANUMET [Concomitant]
     Active Substance: METFORMIN HYDROCHLORIDE\SITAGLIPTIN PHOSPHATE
     Dosage: 50/1000 MG
     Route: 048
  19. PALEXIA [Concomitant]
     Active Substance: TAPENTADOL HYDROCHLORIDE
     Indication: Pain
     Route: 048
  20. CORDILOX [Concomitant]
     Dosage: 100MG TABLET HALF TABLET (=50MG) DAILY PO
     Route: 048
     Dates: end: 202407
  21. CLOPIDOGREL BESILATE [Concomitant]
     Active Substance: CLOPIDOGREL BESILATE
     Route: 048
  22. FLOLAN [Concomitant]
     Active Substance: EPOPROSTENOL SODIUM
     Indication: Pulmonary hypertension
  23. METFORMIN [Concomitant]
     Active Substance: METFORMIN HYDROCHLORIDE
     Indication: Type 2 diabetes mellitus
     Route: 048
  24. SITAGLIPTIN [Concomitant]
     Active Substance: SITAGLIPTIN
     Indication: Type 2 diabetes mellitus
     Dosage: 50/1000MG TABLET BD PO DOSE DECREASED FOR KIDNEY FUNCTION TO 25/500MG (DATE UNDISCLOSED)
     Route: 048
  25. MAGNESIUM ASPARTATE [Concomitant]
     Active Substance: MAGNESIUM ASPARTATE
     Indication: Mineral supplementation
     Route: 048
     Dates: end: 202408
  26. DOCUSATE SODIUM\SENNOSIDE A\SENNOSIDE B [Concomitant]
     Active Substance: DOCUSATE SODIUM\SENNOSIDE A\SENNOSIDE B
     Indication: Constipation
     Route: 048
  27. POLYETHYLENE GLYCOL 3350\POTASSIUM CHLORIDE\SODIUM BICARBONATE\SODIUM [Concomitant]
     Active Substance: POLYETHYLENE GLYCOL 3350\POTASSIUM CHLORIDE\SODIUM BICARBONATE\SODIUM CHLORIDE
     Indication: Constipation
  28. CLOPIDOGREL [Concomitant]
     Active Substance: CLOPIDOGREL BISULFATE
     Indication: Cerebrovascular accident prophylaxis
     Route: 048
  29. LYRICA [Concomitant]
     Active Substance: PREGABALIN
     Indication: Neuralgia
  30. ACETAMINOPHEN [Concomitant]
     Active Substance: ACETAMINOPHEN
     Indication: Pain
     Dosage: 2 TABLETS TDS MAXIMUM OF 3000MG IN 24HRS
     Route: 048
  31. TEMAZEPAM [Concomitant]
     Active Substance: TEMAZEPAM
     Route: 048
  32. NIZAC [Concomitant]
     Indication: Gastrooesophageal reflux disease
     Dosage: PRN
     Route: 048
  33. FLUTICASONE [Concomitant]
     Active Substance: FLUTICASONE
     Dosage: 200/62.5/25MCG, INHALE1 PUFF MANE?INDICATION: IMPROVE CONTROL OF AIRWAYS DISEASE 2
  34. ALBUTEROL [Concomitant]
     Active Substance: ALBUTEROL
     Dosage: 1-2 PUFFS QID PRN
  35. AZELASTINE [Concomitant]
     Active Substance: AZELASTINE
     Indication: Hypersensitivity
     Dosage: 1 SPRAY DOSE MANE
  36. DEXTRAN [Concomitant]
     Active Substance: DEXTRAN
     Indication: Dry eye
     Dosage: 0.4ML, 1 DROP PRN BOTH EYES
  37. COBAL-B12 [Concomitant]
     Indication: Vitamin supplementation
     Route: 030
  38. SPAN K [Concomitant]
     Dosage: 600MG TABLET, 2 MANE
     Dates: start: 202408

REACTIONS (17)
  - Drug ineffective [Unknown]
  - Therapy change [Unknown]
  - Renal impairment [Unknown]
  - Fatigue [Not Recovered/Not Resolved]
  - Dyspnoea [Unknown]
  - Oxygen saturation decreased [Unknown]
  - Tachycardia [Recovered/Resolved]
  - Hyperhidrosis [Recovered/Resolved]
  - Rash [Not Recovered/Not Resolved]
  - Diarrhoea [Not Recovered/Not Resolved]
  - Joint swelling [Not Recovered/Not Resolved]
  - Dyspnoea exertional [Not Recovered/Not Resolved]
  - Erythema [Not Recovered/Not Resolved]
  - Headache [Not Recovered/Not Resolved]
  - Eye injury [Unknown]
  - Rash pruritic [Not Recovered/Not Resolved]
  - Blood glucose increased [Not Recovered/Not Resolved]

NARRATIVE: CASE EVENT DATE: 20240101
